FAERS Safety Report 9894824 (Version 1)
Quarter: 2014Q1

REPORT INFORMATION
  Report Type: Spontaneous
  Country: US (occurrence: US)
  Receive Date: 20140213
  Receipt Date: 20140213
  Transmission Date: 20141002
  Serious: No
  Sender: FDA-Public Use
  Company Number: US-BAXTER-2014BAX005690

PATIENT
  Age: 66 Year
  Sex: Female

DRUGS (1)
  1. GAMMAGARD LIQUID [Suspect]
     Indication: PRODUCT USED FOR UNKNOWN INDICATION
     Route: 065

REACTIONS (1)
  - Adverse reaction [Unknown]
